FAERS Safety Report 21060567 (Version 1)
Quarter: 2022Q3

REPORT INFORMATION
  Report Type: Report from Study
  Country: CA (occurrence: CA)
  Receive Date: 20220708
  Receipt Date: 20220708
  Transmission Date: 20221026
  Serious: Yes (Other)
  Sender: FDA-Public Use
  Company Number: CA-ABBVIE-22K-028-4456884-00

PATIENT
  Age: 57 Year
  Sex: Female

DRUGS (1)
  1. RINVOQ [Suspect]
     Active Substance: UPADACITINIB
     Indication: Rheumatoid arthritis
     Route: 048
     Dates: start: 20211204

REACTIONS (10)
  - Wisdom teeth removal [Recovering/Resolving]
  - Migraine [Unknown]
  - Hyperacusis [Unknown]
  - Tinnitus [Unknown]
  - Gait disturbance [Unknown]
  - Fatigue [Recovered/Resolved]
  - Oral mucosa haematoma [Unknown]
  - Device difficult to use [Unknown]
  - Dizziness [Unknown]
  - Feeling abnormal [Unknown]

NARRATIVE: CASE EVENT DATE: 20220401
